FAERS Safety Report 11685341 (Version 2)
Quarter: 2015Q4

REPORT INFORMATION
  Report Type: Spontaneous
  Country: US (occurrence: US)
  Receive Date: 20151030
  Receipt Date: 20151209
  Transmission Date: 20160304
  Serious: No
  Sender: FDA-Public Use
  Company Number: US-ASTRAZENECA-2015SF02218

PATIENT
  Age: 51 Year
  Sex: Female

DRUGS (5)
  1. NEXIUM [Suspect]
     Active Substance: ESOMEPRAZOLE MAGNESIUM
     Indication: OESOPHAGEAL SPASM
     Route: 048
     Dates: start: 2012
  2. SYNTHROID [Concomitant]
     Active Substance: LEVOTHYROXINE SODIUM
  3. METFORMIN [Concomitant]
     Active Substance: METFORMIN HYDROCHLORIDE
  4. BYDUREON [Suspect]
     Active Substance: EXENATIDE
     Indication: WEIGHT ABNORMAL
     Dosage: 2 MG 1 COUNT, 2 MG, ONCE A WEEK
     Route: 058
     Dates: start: 20151016
  5. BYDUREON [Suspect]
     Active Substance: EXENATIDE
     Indication: TYPE 2 DIABETES MELLITUS
     Dosage: 2 MG 1 COUNT, 2 MG, ONCE A WEEK
     Route: 058
     Dates: start: 20151016

REACTIONS (8)
  - Depressed mood [Unknown]
  - Injection site reaction [Unknown]
  - Injection site pruritus [Unknown]
  - Off label use [Unknown]
  - Urticaria [Unknown]
  - Injection site erythema [Unknown]
  - Product use issue [Unknown]
  - Type 2 diabetes mellitus [Unknown]

NARRATIVE: CASE EVENT DATE: 2012
